FAERS Safety Report 6755643-7 (Version None)
Quarter: 2010Q2

REPORT INFORMATION
  Report Type: 
  Country: None (occurrence: None)
  Receive Date: 20100604
  Receipt Date: 20100525
  Transmission Date: 20101027
  Serious: Yes (Other)
  Sender: FDA-Public Use
  Company Number: US-BAYER-201018402NA

PATIENT
  Age: 33 Year
  Sex: Female
  Weight: 109 kg

DRUGS (12)
  1. OCELLA [Suspect]
     Indication: MENSTRUATION IRREGULAR
     Route: 048
     Dates: start: 20030401, end: 20091101
  2. YASMIN [Suspect]
     Indication: MENSTRUATION IRREGULAR
     Route: 048
     Dates: start: 20030401, end: 20091101
  3. YAZ [Suspect]
     Indication: DRUG USE FOR UNKNOWN INDICATION
     Route: 048
     Dates: start: 20030101, end: 20091201
  4. LISINOPRIL [Concomitant]
     Indication: HYPERTENSION
     Dates: start: 20070101
  5. ZITHROMAX [Concomitant]
     Dates: start: 20060101
  6. INDOREL [Concomitant]
     Dates: start: 20020101, end: 20050101
  7. ATENOLOL [Concomitant]
     Indication: HYPERTENSION
     Dates: start: 20090101, end: 20100101
  8. PRILOSEC [Concomitant]
  9. ALBUTEROL SULATE [Concomitant]
  10. FENERGAN [Concomitant]
  11. ANAPROX [Concomitant]
  12. LOESTRIN 1.5/30 [Concomitant]
     Indication: ORAL CONTRACEPTION

REACTIONS (5)
  - ABDOMINAL PAIN UPPER [None]
  - CHOLECYSTITIS CHRONIC [None]
  - CHOLELITHIASIS [None]
  - CHOLESTEROSIS [None]
  - DIARRHOEA [None]
